FAERS Safety Report 7209494-X (Version None)
Quarter: 2011Q1

REPORT INFORMATION
  Report Type: 
  Country: None (occurrence: None)
  Receive Date: 20110104
  Receipt Date: 20101222
  Transmission Date: 20110831
  Serious: Yes (Hospitalization, Other)
  Sender: FDA-Public Use
  Company Number: PHHY2010JP52767

PATIENT
  Sex: Female
  Weight: 65 kg

DRUGS (8)
  1. TAXOL [Concomitant]
     Indication: BREAST CANCER
     Dosage: 130 MG
     Dates: start: 20091023, end: 20100607
  2. TOREMIFENE [Concomitant]
     Dosage: UNK
     Dates: start: 20090810
  3. ZOMETA [Suspect]
     Indication: METASTASES TO BONE
     Dosage: 4 MG PER ADMINISTRATION
     Route: 041
     Dates: start: 20060725
  4. LETROZOLE [Concomitant]
     Dosage: UNK
     Dates: start: 20060919
  5. TS 1 [Concomitant]
     Dosage: UNK
     Dates: start: 20070501
  6. XELODA [Concomitant]
     Dosage: UNK
     Dates: start: 20090324
  7. AROMASIN [Concomitant]
     Dosage: UNK
     Dates: start: 20080916
  8. AREDIA [Suspect]
     Indication: METASTASES TO BONE
     Dosage: 90 MG PER ADMINISTRATION
     Route: 041
     Dates: start: 20040518, end: 20060701

REACTIONS (8)
  - FEMUR FRACTURE [None]
  - FALL [None]
  - GAIT DISTURBANCE [None]
  - METASTASES TO BONE [None]
  - BLOOD ALKALINE PHOSPHATASE INCREASED [None]
  - HUMERUS FRACTURE [None]
  - BONE PAIN [None]
  - OPEN REDUCTION OF FRACTURE [None]
